FAERS Safety Report 6836015-3 (Version None)
Quarter: 2010Q3

REPORT INFORMATION
  Report Type: 
  Country: None (occurrence: None)
  Receive Date: 20100713
  Receipt Date: 20100707
  Transmission Date: 20110219
  Serious: Yes (Hospitalization)
  Sender: FDA-Public Use
  Company Number: A0869626A

PATIENT
  Sex: Male

DRUGS (1)
  1. AVANDIA [Suspect]

REACTIONS (3)
  - ERECTILE DYSFUNCTION [None]
  - FRONTOTEMPORAL DEMENTIA [None]
  - MYOCARDIAL INFARCTION [None]
